FAERS Safety Report 6207809-2 (Version None)
Quarter: 2009Q2

REPORT INFORMATION
  Report Type: 
  Country: None (occurrence: None)
  Receive Date: 20090528
  Receipt Date: 20090522
  Transmission Date: 20091009
  Serious: Yes (Hospitalization)
  Sender: FDA-Public Use
  Company Number: ES-ELI_LILLY_AND_COMPANY-ES200905004929

PATIENT
  Age: 84 Year
  Sex: Male

DRUGS (3)
  1. FORTEO [Suspect]
     Indication: OSTEOPOROSIS
     Dosage: 20 UG, UNKNOWN
     Route: 058
     Dates: start: 20090514, end: 20090514
  2. SINTROM [Concomitant]
  3. DURAGESIC-100 [Concomitant]

REACTIONS (2)
  - GASTRITIS [None]
  - PNEUMONIA [None]
